FAERS Safety Report 23773676 (Version 1)
Quarter: 2024Q2

REPORT INFORMATION
  Report Type: Spontaneous
  Country: US (occurrence: US)
  Receive Date: 20240423
  Receipt Date: 20240423
  Transmission Date: 20240716
  Serious: No
  Sender: FDA-Public Use
  Company Number: US-BIOGEN-2023BI01187832

PATIENT
  Sex: Female

DRUGS (1)
  1. TYSABRI [Suspect]
     Active Substance: NATALIZUMAB
     Indication: Multiple sclerosis
     Route: 050
     Dates: start: 20230213

REACTIONS (4)
  - Inappropriate schedule of product administration [Unknown]
  - Infusion site pain [Not Recovered/Not Resolved]
  - Multiple sclerosis [Unknown]
  - Dizziness [Not Recovered/Not Resolved]

NARRATIVE: CASE EVENT DATE: 20230101
